FAERS Safety Report 8316284-3 (Version None)
Quarter: 2012Q2

REPORT INFORMATION
  Report Type: 
  Country: None (occurrence: None)
  Receive Date: 20120427
  Receipt Date: 20120425
  Transmission Date: 20120825
  Serious: No
  Sender: FDA-Public Use
  Company Number: US-PFIZER INC-2012102860

PATIENT
  Sex: Female
  Weight: 54.422 kg

DRUGS (2)
  1. CHANTIX [Suspect]
     Indication: SMOKING CESSATION THERAPY
     Dosage: 0.5 MG, 1X/DAY
     Route: 048
     Dates: start: 20110101, end: 20110101
  2. LOTENSIN HCT [Concomitant]
     Indication: HYPERTENSION
     Dosage: 20/25 MG, UNK

REACTIONS (3)
  - ALLERGY TO CHEMICALS [None]
  - PROTEIN TOTAL DECREASED [None]
  - WEIGHT DECREASED [None]
